FAERS Safety Report 11864766 (Version 1)
Quarter: 2015Q4

REPORT INFORMATION
  Report Type: Spontaneous
  Country: JP (occurrence: JP)
  Receive Date: 20151223
  Receipt Date: 20151223
  Transmission Date: 20160305
  Serious: Yes (Other)
  Sender: FDA-Public Use
  Company Number: JP-FERRINGPH-2015FE03925

PATIENT

DRUGS (4)
  1. ESTRANA [Concomitant]
     Active Substance: ESTRADIOL
     Dosage: 2.88 MG, DAILY
     Route: 062
     Dates: start: 20150901, end: 20150926
  2. LUTINUS [Suspect]
     Active Substance: PROGESTERONE
     Indication: ASSISTED FERTILISATION
     Dosage: 300 MG, UNK
     Route: 067
     Dates: start: 20150912, end: 20150926
  3. LUTORAL [Concomitant]
     Active Substance: CHLORMADINONE ACETATE\MESTRANOL
     Dosage: 12 MG, DAILY
     Route: 048
     Dates: start: 20150912, end: 20150926
  4. PROGESTERONE. [Concomitant]
     Active Substance: PROGESTERONE
     Dosage: 75 MG, DAILY
     Route: 030
     Dates: start: 20150917, end: 20150926

REACTIONS (1)
  - Peritonitis [Recovered/Resolved]

NARRATIVE: CASE EVENT DATE: 20150918
